FAERS Safety Report 17769474 (Version 3)
Quarter: 2020Q2

REPORT INFORMATION
  Report Type: Report from Study
  Country: US (occurrence: US)
  Receive Date: 20200512
  Receipt Date: 20200623
  Transmission Date: 20200714
  Serious: Yes (Hospitalization, Disabling, Other)
  Sender: FDA-Public Use
  Company Number: US-GILEAD-2020-0461683

PATIENT
  Age: 50 Year
  Sex: Male

DRUGS (1)
  1. SOFOSBUVIR W/VELPATASVIR [Suspect]
     Active Substance: SOFOSBUVIR\VELPATASVIR
     Indication: CHRONIC HEPATITIS C
     Dosage: 1 DOSAGE FORM, QD
     Route: 048
     Dates: start: 20200213

REACTIONS (10)
  - Urinary tract infection [Not Recovered/Not Resolved]
  - Product use issue [Not Recovered/Not Resolved]
  - Diabetic coma [Unknown]
  - Unresponsive to stimuli [Not Recovered/Not Resolved]
  - Coma [Unknown]
  - Diabetic complication [Not Recovered/Not Resolved]
  - Brain injury [Unknown]
  - Incorrect route of product administration [Not Recovered/Not Resolved]
  - Cardiac arrest [Unknown]
  - Wrong technique in product usage process [Not Recovered/Not Resolved]

NARRATIVE: CASE EVENT DATE: 202004
